FAERS Safety Report 15087768 (Version 1)
Quarter: 2018Q2

REPORT INFORMATION
  Report Type: Spontaneous
  Country: PL (occurrence: PL)
  Receive Date: 20180629
  Receipt Date: 20180629
  Transmission Date: 20180711
  Serious: Yes (Hospitalization)
  Sender: FDA-Public Use
  Company Number: PL-SUN PHARMACEUTICAL INDUSTRIES LTD-2018RR-176974

PATIENT
  Sex: Female

DRUGS (1)
  1. KLABAX [Suspect]
     Active Substance: CLARITHROMYCIN
     Indication: BRONCHITIS
     Dosage: FOR 2-3 DAYS
     Route: 048
     Dates: start: 201802, end: 201802

REACTIONS (2)
  - Chest pain [Unknown]
  - Hypertension [Unknown]
